FAERS Safety Report 13936607 (Version 1)
Quarter: 2017Q3

REPORT INFORMATION
  Report Type: Spontaneous
  Country: US (occurrence: US)
  Receive Date: 20170905
  Receipt Date: 20170905
  Transmission Date: 20171127
  Serious: No
  Sender: FDA-Public Use
  Company Number: US-BIOMARINAP-US-2017-115252

PATIENT
  Age: 43 Year
  Sex: Male

DRUGS (1)
  1. KUVAN [Suspect]
     Active Substance: SAPROPTERIN DIHYDROCHLORIDE
     Indication: PRODUCT USED FOR UNKNOWN INDICATION
     Dosage: 570 MG, UNK
     Route: 065

REACTIONS (3)
  - Headache [Unknown]
  - Amino acid level increased [Recovering/Resolving]
  - Malaise [Unknown]
